FAERS Safety Report 25190403 (Version 2)
Quarter: 2025Q2

REPORT INFORMATION
  Report Type: Spontaneous
  Country: AU (occurrence: AU)
  Receive Date: 20250411
  Receipt Date: 20250506
  Transmission Date: 20250717
  Serious: No
  Sender: VIIV
  Company Number: AU-VIIV HEALTHCARE-AU2024APC147820

PATIENT

DRUGS (3)
  1. CABENUVA [Suspect]
     Active Substance: CABOTEGRAVIR\RILPIVIRINE
     Indication: Product used for unknown indication
     Dosage: UNK, Q2M, CABOTEGRAVIR 600MG, RILPIVIRINE 900MG, EVERY 56 DAYS
     Route: 030
  2. CABENUVA [Suspect]
     Active Substance: CABOTEGRAVIR\RILPIVIRINE
  3. CABENUVA [Suspect]
     Active Substance: CABOTEGRAVIR\RILPIVIRINE

REACTIONS (1)
  - Treatment noncompliance [Unknown]
